FAERS Safety Report 18085955 (Version 3)
Quarter: 2022Q1

REPORT INFORMATION
  Report Type: Other
  Country: CA (occurrence: CA)
  Receive Date: 20200729
  Receipt Date: 20220331
  Transmission Date: 20220423
  Serious: Yes (Hospitalization, Other)
  Sender: FDA-Public Use
  Company Number: None

PATIENT
  Age: 61 Year
  Sex: Male

DRUGS (8)
  1. METHOTREXATE [Suspect]
     Active Substance: METHOTREXATE
     Indication: Diffuse large B-cell lymphoma
     Route: 042
  2. LEUCOVORIN [Suspect]
     Active Substance: LEUCOVORIN
     Indication: Toxicity to various agents
     Dosage: 1 EVERY 3 HOURS
  3. GLUCARPIDASE [Suspect]
     Active Substance: GLUCARPIDASE
     Indication: Toxicity to various agents
     Dosage: FREQUENCY: EVERY 3 HOURS
     Route: 040
  4. CYCLOPHOSPHAMIDE [Concomitant]
     Active Substance: CYCLOPHOSPHAMIDE
     Indication: Diffuse large B-cell lymphoma
  5. DOXORUBICIN [Concomitant]
     Active Substance: DOXORUBICIN
     Indication: Diffuse large B-cell lymphoma
  6. PREDNISONE [Concomitant]
     Active Substance: PREDNISONE
     Indication: Diffuse large B-cell lymphoma
  7. RITUXIMAB [Concomitant]
     Active Substance: RITUXIMAB
     Indication: Diffuse large B-cell lymphoma
  8. VINCRISTINE [Concomitant]
     Active Substance: VINCRISTINE
     Indication: Diffuse large B-cell lymphoma

REACTIONS (8)
  - Nephropathy toxic [Recovered/Resolved]
  - Toxicity to various agents [Unknown]
  - Acute kidney injury [Recovered/Resolved]
  - False positive investigation result [Unknown]
  - Neurotoxicity [Recovered/Resolved]
  - Drug ineffective [Unknown]
  - Status epilepticus [Recovered/Resolved]
  - Drug level increased [Recovered/Resolved]
